FAERS Safety Report 4449322-9 (Version None)
Quarter: 2004Q3

REPORT INFORMATION
  Report Type: 
  Country: None (occurrence: None)
  Receive Date: 20040909
  Receipt Date: 20040824
  Transmission Date: 20050211
  Serious: Yes (Hospitalization)
  Sender: FDA-Public Use
  Company Number: USA040876462

PATIENT
  Age: 56 Year
  Sex: Male

DRUGS (1)
  1. HUMULIN 70/30 [Suspect]
     Dosage: 86 U/2 DAY
     Dates: start: 20030101

REACTIONS (1)
  - CHOLELITHIASIS [None]
